FAERS Safety Report 9630343 (Version 1)
Quarter: 2013Q4

REPORT INFORMATION
  Report Type: Spontaneous
  Country: US (occurrence: US)
  Receive Date: 20131018
  Receipt Date: 20131018
  Transmission Date: 20140711
  Serious: No
  Sender: FDA-Public Use
  Company Number: US-009507513-1310USA005735

PATIENT
  Sex: Female
  Weight: 75.74 kg

DRUGS (2)
  1. IMPLANON [Suspect]
     Dosage: 1 DF; 1 ROD EVERY THREE YEARS
     Route: 059
     Dates: start: 20130830, end: 20130830
  2. IMPLANON [Suspect]
     Dosage: UNK
     Route: 059
     Dates: start: 2010, end: 20130820

REACTIONS (4)
  - Device difficult to use [Unknown]
  - Product physical issue [Unknown]
  - Product quality issue [Unknown]
  - No adverse event [Unknown]
